FAERS Safety Report 16990827 (Version 1)
Quarter: 2019Q4

REPORT INFORMATION
  Report Type: Spontaneous
  Country: FR (occurrence: FR)
  Receive Date: 20191104
  Receipt Date: 20191104
  Transmission Date: 20200122
  Serious: Yes (Other)
  Sender: FDA-Public Use
  Company Number: FR-PFIZER INC-2019469148

PATIENT
  Age: 29 Year
  Sex: Female
  Weight: 52 kg

DRUGS (2)
  1. CELEBREX [Suspect]
     Active Substance: CELECOXIB
     Indication: SPONDYLITIS
     Dosage: 2 DF, 1X/DAY
     Route: 048
     Dates: start: 201901, end: 20190702
  2. CIMZIA [Suspect]
     Active Substance: CERTOLIZUMAB PEGOL
     Indication: SPONDYLITIS
     Dosage: 1 DF EVERY 15 DAYS
     Route: 058
     Dates: start: 20190405, end: 20190614

REACTIONS (2)
  - Erythema multiforme [Recovered/Resolved]
  - Psoriasis [Recovered/Resolved]

NARRATIVE: CASE EVENT DATE: 20190618
